FAERS Safety Report 12386094 (Version 1)
Quarter: 2016Q2

REPORT INFORMATION
  Report Type: Spontaneous
  Country: US (occurrence: US)
  Receive Date: 20160519
  Receipt Date: 20160519
  Transmission Date: 20160815
  Serious: Yes (Other)
  Sender: FDA-Public Use
  Company Number: US-PFIZER INC-2016259176

PATIENT
  Age: 49 Year
  Sex: Male

DRUGS (1)
  1. CORTISONE ACETATE. [Suspect]
     Active Substance: CORTISONE ACETATE
     Dosage: 1500 MG, UNK

REACTIONS (2)
  - Affective disorder [Recovered/Resolved]
  - Psychotic disorder [Recovered/Resolved]
